FAERS Safety Report 15968832 (Version 2)
Quarter: 2019Q2

REPORT INFORMATION
  Report Type: Report from Study
  Country: US (occurrence: US)
  Receive Date: 20190215
  Receipt Date: 20190426
  Transmission Date: 20190711
  Serious: Yes (Hospitalization, Other)
  Sender: FDA-Public Use
  Company Number: US-BIOGEN-2019BI00695497

PATIENT
  Sex: Female

DRUGS (1)
  1. AVONEX [Suspect]
     Active Substance: INTERFERON BETA-1A
     Indication: MULTIPLE SCLEROSIS
     Route: 050

REACTIONS (14)
  - Sepsis [Recovered/Resolved]
  - Feeling hot [Not Recovered/Not Resolved]
  - Insomnia [Recovered/Resolved]
  - Tremor [Not Recovered/Not Resolved]
  - Collateral circulation [Recovered/Resolved]
  - Agraphia [Not Recovered/Not Resolved]
  - Photophobia [Recovered/Resolved]
  - Pruritus [Not Recovered/Not Resolved]
  - Influenza like illness [Recovered/Resolved]
  - Intervertebral disc protrusion [Recovered/Resolved]
  - Amnesia [Not Recovered/Not Resolved]
  - Hyperacusis [Recovered/Resolved]
  - Epilepsy [Not Recovered/Not Resolved]
  - Migraine [Not Recovered/Not Resolved]

NARRATIVE: CASE EVENT DATE: 2014
